FAERS Safety Report 7060388-2 (Version None)
Quarter: 2010Q4

REPORT INFORMATION
  Report Type: 
  Country: None (occurrence: None)
  Receive Date: 20101025
  Receipt Date: 20101015
  Transmission Date: 20110411
  Serious: No
  Sender: FDA-Public Use
  Company Number: US-ASTRAZENECA-2010SE45873

PATIENT
  Age: 662 Month
  Sex: Female
  Weight: 71.7 kg

DRUGS (20)
  1. SEROQUEL [Suspect]
     Indication: BIPOLAR DISORDER
     Route: 048
     Dates: start: 20040101, end: 20040101
  2. SEROQUEL [Suspect]
     Indication: SCHIZOPHRENIA
     Route: 048
     Dates: start: 20040101, end: 20040101
  3. SEROQUEL [Suspect]
     Route: 048
     Dates: start: 20040101, end: 20040101
  4. SEROQUEL [Suspect]
     Route: 048
     Dates: start: 20040101, end: 20040101
  5. SEROQUEL [Suspect]
     Route: 048
     Dates: start: 20040101
  6. SEROQUEL [Suspect]
     Route: 048
     Dates: start: 20040101
  7. SEROQUEL [Suspect]
     Dosage: 200 OR 400 MG
     Route: 048
     Dates: start: 20090101
  8. SEROQUEL [Suspect]
     Dosage: 200 OR 400 MG
     Route: 048
     Dates: start: 20090101
  9. SEROQUEL [Suspect]
     Route: 048
  10. SEROQUEL [Suspect]
     Route: 048
  11. SYNTHROID [Concomitant]
  12. PRISTIQ [Concomitant]
  13. CLONAZEPAM [Concomitant]
     Indication: ANXIETY
  14. IRON [Concomitant]
  15. CALCIUM [Concomitant]
  16. VITAMINS [Concomitant]
  17. SUDOGEST [Concomitant]
  18. WELLBUTRIN [Concomitant]
  19. ASPIRIN [Concomitant]
  20. LEVOTHYROXINE [Concomitant]
     Indication: HYPOTHYROIDISM

REACTIONS (14)
  - ANAEMIA [None]
  - EAR DISORDER [None]
  - EYE PAIN [None]
  - EYELID CYST [None]
  - HEADACHE [None]
  - HIDRADENITIS [None]
  - INFECTION [None]
  - INFLUENZA LIKE ILLNESS [None]
  - INTERVERTEBRAL DISC DEGENERATION [None]
  - MULTIPLE ALLERGIES [None]
  - NASAL MUCOSAL DISORDER [None]
  - SOMNOLENCE [None]
  - WHITE BLOOD CELL COUNT DECREASED [None]
  - WHITE BLOOD CELL COUNT INCREASED [None]
